FAERS Safety Report 4979226-4 (Version None)
Quarter: 2006Q2

REPORT INFORMATION
  Report Type: 
  Country: None (occurrence: None)
  Receive Date: 20060418
  Receipt Date: 20060406
  Transmission Date: 20061013
  Serious: Yes (Other)
  Sender: FDA-Public Use
  Company Number: 2006-03-1766

PATIENT
  Age: 46 Year
  Sex: Female

DRUGS (2)
  1. INTRON A [Suspect]
     Indication: MALIGNANT MELANOMA
     Dosage: 32-5 MIU* INTRAVENOUS
     Route: 042
     Dates: start: 20051108, end: 20060301
  2. AMLODIPINE [Concomitant]

REACTIONS (6)
  - EYE PAIN [None]
  - HEPATOTOXICITY [None]
  - RETINAL ARTERY EMBOLISM [None]
  - RETINAL DEPOSITS [None]
  - TACHYCARDIA [None]
  - VISUAL DISTURBANCE [None]
